FAERS Safety Report 5026688-2 (Version None)
Quarter: 2006Q2

REPORT INFORMATION
  Report Type: 
  Country: None (occurrence: None)
  Receive Date: 20060615
  Receipt Date: 20060602
  Transmission Date: 20061013
  Serious: Yes (Other)
  Sender: FDA-Public Use
  Company Number: NL-JNJFOC-20060505216

PATIENT
  Sex: Male
  Weight: 95 kg

DRUGS (2)
  1. BLINDED; METHYLPHENIDATE HYDROCHLORIDE [Suspect]
     Indication: ATTENTION DEFICIT/HYPERACTIVITY DISORDER
     Route: 048
  2. PLACEBO [Suspect]
     Indication: ATTENTION DEFICIT/HYPERACTIVITY DISORDER

REACTIONS (1)
  - DEPRESSION [None]
